FAERS Safety Report 7734776-2 (Version None)
Quarter: 2011Q3

REPORT INFORMATION
  Report Type: 
  Country: None (occurrence: None)
  Receive Date: 20110907
  Receipt Date: 20110902
  Transmission Date: 20111222
  Serious: Yes (Other)
  Sender: FDA-Public Use
  Company Number: US-BRISTOL-MYERS SQUIBB COMPANY-15949977

PATIENT
  Age: 60 Year
  Sex: Male
  Weight: 87 kg

DRUGS (3)
  1. TAXOL [Suspect]
     Indication: NON-SMALL CELL LUNG CANCER
     Dosage: LAST DOSE ON 01JUL2011.HELD ON 29JUL2011
     Dates: start: 20110512
  2. ERBITUX [Suspect]
     Indication: NON-SMALL CELL LUNG CANCER
     Dosage: LAST DOSE ON 15JUL2011,DISCONTINUED ON 29JUL2011
     Dates: start: 20110512
  3. CARBOPLATIN [Suspect]
     Indication: NON-SMALL CELL LUNG CANCER
     Dosage: LAST DOSE ON 01JUL2011,HELD ON 29JUL2011
     Dates: start: 20110512

REACTIONS (3)
  - FATIGUE [None]
  - SINUS TACHYCARDIA [None]
  - DYSPNOEA [None]
